FAERS Safety Report 20951511 (Version 1)
Quarter: 2022Q2

REPORT INFORMATION
  Report Type: Spontaneous
  Country: US (occurrence: None)
  Receive Date: 20220613
  Receipt Date: 20220613
  Transmission Date: 20220721
  Serious: Yes (Hospitalization)
  Sender: FDA-Public Use
  Company Number: None

PATIENT
  Age: 35 Year
  Sex: Female

DRUGS (1)
  1. CAPECITABINE [Suspect]
     Active Substance: CAPECITABINE
     Dosage: FREQUENCY : TWICE A DAY;?
     Route: 048
     Dates: start: 202203

REACTIONS (7)
  - White blood cell count decreased [None]
  - Red blood cell count decreased [None]
  - Fatigue [None]
  - Palmar-plantar erythrodysaesthesia syndrome [None]
  - Abdominal distension [None]
  - Therapy interrupted [None]
  - Laboratory test abnormal [None]

NARRATIVE: CASE EVENT DATE: 20220613
